FAERS Safety Report 10783458 (Version 3)
Quarter: 2015Q1

REPORT INFORMATION
  Report Type: Report from Study
  Country: ZA (occurrence: ZA)
  Receive Date: 20150210
  Receipt Date: 20150228
  Transmission Date: 20150721
  Serious: Yes (Hospitalization)
  Sender: FDA-Public Use
  Company Number: PHHY2015ZA014853

PATIENT
  Sex: Female

DRUGS (5)
  1. ASPAVOR [Concomitant]
     Active Substance: ATORVASTATIN
     Indication: BLOOD CHOLESTEROL INCREASED
     Dosage: 20 MG, QD
     Route: 048
     Dates: start: 201304
  2. CELEBREX [Concomitant]
     Active Substance: CELECOXIB
     Indication: ARTHRITIS
     Dosage: UNK
     Route: 048
     Dates: start: 201501
  3. TRAMAZAC [Concomitant]
     Indication: PAIN
     Dosage: UNK(37.5/325)
     Route: 048
     Dates: start: 201407
  4. TAREG [Suspect]
     Active Substance: VALSARTAN
     Indication: HYPERTENSION
     Dosage: 160 MG, QD
     Route: 048
     Dates: start: 2012
  5. ROBAXIN [Concomitant]
     Active Substance: METHOCARBAMOL
     Indication: BONE PAIN
     Dosage: 500 MG, UNK
     Route: 048
     Dates: start: 201311

REACTIONS (4)
  - Vaginal haemorrhage [Recovering/Resolving]
  - Uterine leiomyoma [Recovering/Resolving]
  - Endometriosis [Recovering/Resolving]
  - Pelvic pain [Recovering/Resolving]
